FAERS Safety Report 7111359-9 (Version None)
Quarter: 2010Q4

REPORT INFORMATION
  Report Type: 
  Country: None (occurrence: None)
  Receive Date: 20101118
  Receipt Date: 20101111
  Transmission Date: 20110411
  Serious: Yes (Death, Other)
  Sender: FDA-Public Use
  Company Number: PHEH2009US02564

PATIENT
  Sex: Female

DRUGS (9)
  1. AREDIA [Suspect]
  2. ZOMETA [Suspect]
  3. TAXOTERE [Concomitant]
  4. TAXOL [Concomitant]
  5. XELODA [Concomitant]
  6. ARANESP [Concomitant]
  7. VIOXX [Concomitant]
  8. GLUCOVANCE [Concomitant]
  9. ZOCOR [Concomitant]

REACTIONS (71)
  - ABSCESS DRAINAGE [None]
  - ABSCESS JAW [None]
  - ACTINOMYCOSIS [None]
  - ANAEMIA [None]
  - ANXIETY [None]
  - ARTHRALGIA [None]
  - ASTHENIA [None]
  - BACK PAIN [None]
  - BONE DISORDER [None]
  - BONE NEOPLASM [None]
  - BONE PAIN [None]
  - BURSITIS [None]
  - CANDIDIASIS [None]
  - CARPAL TUNNEL SYNDROME [None]
  - CONTUSION [None]
  - CYST [None]
  - DEATH [None]
  - DECREASED APPETITE [None]
  - DECREASED INTEREST [None]
  - DEEP VEIN THROMBOSIS [None]
  - DENTAL FISTULA [None]
  - EAR INFECTION [None]
  - ERYTHEMA [None]
  - FALL [None]
  - FATIGUE [None]
  - FRACTURED SACRUM [None]
  - GENERAL PHYSICAL HEALTH DETERIORATION [None]
  - HYPERBARIC OXYGEN THERAPY [None]
  - HYPOAESTHESIA [None]
  - IMPAIRED HEALING [None]
  - JAW FRACTURE [None]
  - JAW OPERATION [None]
  - LUMBAR RADICULOPATHY [None]
  - LUMBAR SPINAL STENOSIS [None]
  - MASS [None]
  - MEMORY IMPAIRMENT [None]
  - MENISCUS LESION [None]
  - METASTASES TO BONE [None]
  - METASTASES TO SPINE [None]
  - MUSCULOSKELETAL DISORDER [None]
  - MUSCULOSKELETAL PAIN [None]
  - NEPHROLITHIASIS [None]
  - NEURALGIA [None]
  - NEUTROPENIA [None]
  - NIGHT SWEATS [None]
  - OPEN REDUCTION OF FRACTURE [None]
  - OSTEOMYELITIS [None]
  - OSTEONECROSIS OF JAW [None]
  - OSTEOPENIA [None]
  - PAIN [None]
  - PARAESTHESIA [None]
  - PATELLA FRACTURE [None]
  - PATHOLOGICAL FRACTURE [None]
  - PELVIC HAEMATOMA [None]
  - PERIARTHRITIS [None]
  - PERIOSTITIS [None]
  - PUBIS FRACTURE [None]
  - PYREXIA [None]
  - RADICULOPATHY [None]
  - RADIUS FRACTURE [None]
  - ROTATOR CUFF SYNDROME [None]
  - SCIATICA [None]
  - SPINAL OSTEOARTHRITIS [None]
  - STAPHYLOCOCCAL INFECTION [None]
  - STRESS FRACTURE [None]
  - SYNOVIAL CYST [None]
  - TENDONITIS [None]
  - THROMBOCYTOPENIA [None]
  - TOOTH EXTRACTION [None]
  - WEIGHT DECREASED [None]
  - WOUND DEHISCENCE [None]
